FAERS Safety Report 9994371 (Version 3)
Quarter: 2014Q2

REPORT INFORMATION
  Report Type: Spontaneous
  Country: AR (occurrence: AR)
  Receive Date: 20140311
  Receipt Date: 20140507
  Transmission Date: 20141212
  Serious: Yes (Hospitalization, Other)
  Sender: FDA-Public Use
  Company Number: AR-AMGEN-ARGSP2014016849

PATIENT
  Age: 64 Year
  Sex: Female
  Weight: 55 kg

DRUGS (3)
  1. ENBREL [Suspect]
     Indication: RHEUMATOID ARTHRITIS
     Dosage: 50 MG, WEEKLY
     Route: 065
     Dates: start: 20100401, end: 201401
  2. LEFLUNOMIDE [Concomitant]
     Dosage: UNK
  3. METHOTREXATE [Concomitant]
     Dosage: UNK

REACTIONS (10)
  - Pulmonary mass [Recovering/Resolving]
  - Pyrexia [Recovered/Resolved]
  - Pulmonary fibrosis [Recovering/Resolving]
  - Red blood cell sedimentation rate increased [Recovering/Resolving]
  - Decreased appetite [Recovered/Resolved]
  - Fatigue [Recovering/Resolving]
  - Somnolence [Recovering/Resolving]
  - Hyperhidrosis [Recovering/Resolving]
  - Arthritis [Not Recovered/Not Resolved]
  - Tuberculosis [Not Recovered/Not Resolved]
